FAERS Safety Report 24372369 (Version 1)
Quarter: 2024Q3

REPORT INFORMATION
  Report Type: Spontaneous
  Country: CA (occurrence: CA)
  Receive Date: 20240927
  Receipt Date: 20240927
  Transmission Date: 20241016
  Serious: Yes (Other)
  Sender: RANBAXY
  Company Number: CA-SUN PHARMACEUTICAL INDUSTRIES LTD-2024R1-462318

PATIENT
  Age: 54 Year
  Sex: Male

DRUGS (1)
  1. CEQUA [Suspect]
     Active Substance: CYCLOSPORINE
     Indication: Dry eye
     Dosage: UNK UNK, BID
     Route: 047

REACTIONS (5)
  - Vision blurred [Recovering/Resolving]
  - Product lot number issue [Unknown]
  - Conjunctival oedema [Unknown]
  - Vitreous floaters [Unknown]
  - Therapy cessation [Unknown]
